FAERS Safety Report 6222590-9 (Version None)
Quarter: 2009Q2

REPORT INFORMATION
  Report Type: 
  Country: None (occurrence: None)
  Receive Date: 20090609
  Receipt Date: 20090609
  Transmission Date: 20091009
  Serious: No
  Sender: FDA-Public Use
  Company Number: None

PATIENT
  Sex: Female
  Weight: 65.7716 kg

DRUGS (1)
  1. ADVAIR DISKUS 250/50 [Suspect]
     Indication: CHRONIC OBSTRUCTIVE PULMONARY DISEASE
     Dosage: 1 PUFF 2 X DAY INHAL
     Route: 055
     Dates: start: 20090402, end: 20090606

REACTIONS (2)
  - DRUG DELIVERY SYSTEM MALFUNCTION [None]
  - DRUG HYPERSENSITIVITY [None]
